FAERS Safety Report 15794194 (Version 1)
Quarter: 2018Q4

REPORT INFORMATION
  Report Type: Spontaneous
  Country: US (occurrence: US)
  Receive Date: 20181213
  Receipt Date: 20181213
  Transmission Date: 20190205
  Serious: Yes (Other)
  Sender: FDA-Public Use
  Company Number: None

PATIENT
  Age: 76 Year
  Sex: Female

DRUGS (2)
  1. FORTEO [Suspect]
     Active Substance: TERIPARATIDE
     Indication: OSTEOPOROSIS
     Route: 058
     Dates: start: 20180928, end: 20181120
  2. VITAMIN B3 [Concomitant]
     Active Substance: NIACIN

REACTIONS (3)
  - Insomnia [None]
  - Poor quality sleep [None]
  - Pain [None]
